FAERS Safety Report 19466798 (Version 2)
Quarter: 2022Q1

REPORT INFORMATION
  Report Type: Other
  Country: None (occurrence: US)
  Receive Date: 20210628
  Receipt Date: 20220216
  Transmission Date: 20220424
  Serious: Yes (Life-Threatening, Hospitalization, Other)
  Sender: FDA-Public Use
  Company Number: US-ACI HEALTHCARE LIMITED-2113166

PATIENT
  Sex: Male

DRUGS (8)
  1. LEVETIRACETAM [Suspect]
     Active Substance: LEVETIRACETAM
     Indication: Product used for unknown indication
     Route: 065
  2. ATORVASTATIN CALCIUM [Interacting]
     Active Substance: ATORVASTATIN CALCIUM
     Route: 065
  3. BACLOFEN [Interacting]
     Active Substance: BACLOFEN
     Route: 065
  4. CARBAMAZEPINE [Interacting]
     Active Substance: CARBAMAZEPINE
     Route: 065
  5. CARVEDILOL [Interacting]
     Active Substance: CARVEDILOL
     Route: 065
  6. CLONAZEPAM [Interacting]
     Active Substance: CLONAZEPAM
     Route: 065
  7. LITHIUM [Interacting]
     Active Substance: LITHIUM
     Route: 065
  8. MIRTAZAPINE [Interacting]
     Active Substance: MIRTAZAPINE
     Route: 065

REACTIONS (3)
  - Cardiotoxicity [Recovered/Resolved]
  - Drug interaction [Recovered/Resolved]
  - Diarrhoea [Recovered/Resolved]
